FAERS Safety Report 23911028 (Version 1)
Quarter: 2024Q2

REPORT INFORMATION
  Report Type: Spontaneous
  Country: CN (occurrence: CN)
  Receive Date: 20240528
  Receipt Date: 20240528
  Transmission Date: 20240716
  Serious: Yes (Other)
  Sender: FDA-Public Use
  Company Number: CN-BAYER-2024A076894

PATIENT
  Age: 62 Year
  Sex: Male
  Weight: 63 kg

DRUGS (2)
  1. XARELTO [Suspect]
     Active Substance: RIVAROXABAN
     Indication: Anticoagulant therapy
     Dosage: 10 MG, QD
     Route: 048
     Dates: start: 20231207, end: 20240430
  2. HEPARIN SODIUM [Suspect]
     Active Substance: HEPARIN SODIUM
     Indication: Haemodialysis
     Dosage: 1.25 10E6 IU, BID
     Route: 042
     Dates: start: 20240429, end: 20240430

REACTIONS (8)
  - Cerebral haemorrhage [Recovering/Resolving]
  - Labelled drug-drug interaction issue [Unknown]
  - Facial paralysis [Recovering/Resolving]
  - Cough [Recovering/Resolving]
  - Blood pressure increased [Unknown]
  - Contraindicated product administered [Unknown]
  - Contraindicated product prescribed [Unknown]
  - Off label use [Unknown]

NARRATIVE: CASE EVENT DATE: 20231207
